FAERS Safety Report 7421297-X (Version None)
Quarter: 2011Q2

REPORT INFORMATION
  Report Type: 
  Country: None (occurrence: None)
  Receive Date: 20110418
  Receipt Date: 20110407
  Transmission Date: 20111010
  Serious: Yes (Hospitalization, Disabling, Other)
  Sender: FDA-Public Use
  Company Number: US-MERCK-1012USA01310

PATIENT
  Age: 55 Year
  Sex: Female
  Weight: 52 kg

DRUGS (5)
  1. FOSAMAX [Suspect]
     Indication: OSTEOPOROSIS
     Route: 048
     Dates: start: 20021001, end: 20051001
  2. FOSAMAX [Suspect]
     Indication: HYSTERECTOMY
     Route: 048
     Dates: start: 20021001, end: 20051001
  3. SIMVASTATIN [Concomitant]
     Indication: BLOOD CHOLESTEROL INCREASED
     Route: 048
     Dates: start: 20000101
  4. FOSAMAX PLUS D [Suspect]
     Indication: HYSTERECTOMY
     Route: 048
     Dates: start: 20051001, end: 20070801
  5. FOSAMAX PLUS D [Suspect]
     Indication: OSTEOPOROSIS
     Route: 048
     Dates: start: 20051001, end: 20070801

REACTIONS (14)
  - FEMUR FRACTURE [None]
  - ADVERSE DRUG REACTION [None]
  - URTICARIA [None]
  - LOW TURNOVER OSTEOPATHY [None]
  - GAIT DISTURBANCE [None]
  - FALL [None]
  - LIVER FUNCTION TEST ABNORMAL [None]
  - BACK DISORDER [None]
  - DIABETES MELLITUS [None]
  - DEPRESSION [None]
  - GLAUCOMA [None]
  - HEADACHE [None]
  - SPINAL DISORDER [None]
  - BREAST MASS [None]
